FAERS Safety Report 4384391-6 (Version None)
Quarter: 2004Q2

REPORT INFORMATION
  Report Type: 
  Country: None (occurrence: None)
  Receive Date: 20040607
  Receipt Date: 20031107
  Transmission Date: 20050107
  Serious: Yes (Other)
  Sender: FDA-Public Use
  Company Number: 351341

PATIENT
  Sex: 0

DRUGS (2)
  1. ACCUTANE [Suspect]
     Indication: ACNE CYSTIC
     Dosage: 200 MG DAILY ORAL
     Route: 048
     Dates: start: 20030521
  2. ANTIANXIETY AGENT (ANTIANXIETY AGENT NOS) [Concomitant]

REACTIONS (3)
  - NO ADVERSE EFFECT [None]
  - PREGNANCY [None]
  - TRANSMISSION OF DRUG VIA SEMEN [None]
